FAERS Safety Report 12931536 (Version 3)
Quarter: 2017Q1

REPORT INFORMATION
  Report Type: Spontaneous
  Country: CH (occurrence: CH)
  Receive Date: 20161110
  Receipt Date: 20170302
  Transmission Date: 20170428
  Serious: Yes (Hospitalization, Other)
  Sender: FDA-Public Use
  Company Number: CH-GILEAD-2016-0202332

PATIENT
  Age: 66 Year
  Sex: Female
  Weight: 44 kg

DRUGS (7)
  1. CALCIUM + VITAMIN D3 [Concomitant]
     Active Substance: CALCIUM CARBONATE\CHOLECALCIFEROL
     Indication: OSTEOPOROSIS
     Dosage: 600/400
     Route: 048
  2. COTRIMOXAZOLE [Concomitant]
     Active Substance: SULFAMETHOXAZOLE\TRIMETHOPRIM
     Indication: ANTIFUNGAL PROPHYLAXIS
     Dosage: 160/800 3 TIMES WEEKLY
     Route: 048
     Dates: start: 20160524
  3. ZYDELIG [Suspect]
     Active Substance: IDELALISIB
     Indication: CHRONIC LYMPHOCYTIC LEUKAEMIA RECURRENT
     Dosage: 100 MG, DAILY EVERY OTHER DAY -100 MG BID EVERY OTHER DAY
     Route: 048
     Dates: start: 20160217, end: 20160303
  4. ZYDELIG [Suspect]
     Active Substance: IDELALISIB
     Indication: CHROMOSOMAL DELETION
     Dosage: 100 MG, UNK
     Route: 048
     Dates: end: 2016
  5. ZYDELIG [Suspect]
     Active Substance: IDELALISIB
     Dosage: 100 MG, DAILY EVERY OTHER DAY- 100 MG BID EVERY OTHER DAY
     Route: 048
     Dates: end: 20170111
  6. RITUXIMAB [Concomitant]
     Active Substance: RITUXIMAB
     Indication: CHRONIC LYMPHOCYTIC LEUKAEMIA
  7. FILGRASTIM [Concomitant]
     Active Substance: FILGRASTIM
     Dosage: UNK, PRN

REACTIONS (6)
  - Mycobacterium abscessus infection [Recovering/Resolving]
  - Dermo-hypodermitis [Recovering/Resolving]
  - Streptococcal bacteraemia [Recovered/Resolved]
  - Atypical mycobacterium test positive [Unknown]
  - Thrombocytopenia [Recovering/Resolving]
  - Off label use [Recovered/Resolved]

NARRATIVE: CASE EVENT DATE: 20160217
